FAERS Safety Report 8443928-8 (Version None)
Quarter: 2012Q2

REPORT INFORMATION
  Report Type: 
  Country: None (occurrence: None)
  Receive Date: 20120323
  Receipt Date: 20110809
  Transmission Date: 20120825
  Serious: Yes (Hospitalization)
  Sender: FDA-Public Use
  Company Number: 163-21880-11062222

PATIENT
  Age: 77 Year
  Sex: Male

DRUGS (16)
  1. METOPROLOL (METOPROLOL) (TABLETS) [Concomitant]
  2. COUMADIN [Concomitant]
  3. DECADRON [Concomitant]
  4. ASPIRIN [Concomitant]
  5. REVLIMID [Suspect]
     Indication: MULTIPLE MYELOMA
     Dosage: 25 MG, 1 IN 1 D, PO 2 DAYS, 1 DAY OFF, PO 25 MG, 1 IN 1 D, PO
     Route: 048
     Dates: start: 20061115
  6. REVLIMID [Suspect]
     Indication: MULTIPLE MYELOMA
     Dosage: 25 MG, 1 IN 1 D, PO 2 DAYS, 1 DAY OFF, PO 25 MG, 1 IN 1 D, PO
     Route: 048
     Dates: start: 20110406, end: 20110602
  7. REVLIMID [Suspect]
     Indication: MULTIPLE MYELOMA
     Dosage: 25 MG, 1 IN 1 D, PO 2 DAYS, 1 DAY OFF, PO 25 MG, 1 IN 1 D, PO
     Route: 048
     Dates: start: 20110627
  8. GLUCOSAMINE/CHONDROITIN (GLUCOSAMINE W/CHONDROITIN SULFATE) (TABLETS) [Concomitant]
  9. SIMVASTATIN [Concomitant]
  10. FOLIC ACID (FOLIC ACID) (TABLETS) [Concomitant]
  11. AMIODARONE HCL [Concomitant]
  12. AMLODIPINE [Concomitant]
  13. POTASSIUM CHLORIDE [Concomitant]
  14. LASIX [Concomitant]
  15. CALCIUM PLUS VITAMIN D (CALCIUM D3 ^STADA^) (UNKNOWN) [Concomitant]
  16. CELEBREX [Concomitant]

REACTIONS (2)
  - MYOCARDIAL INFARCTION [None]
  - THROMBOCYTOPENIA [None]
